FAERS Safety Report 5151218-4 (Version None)
Quarter: 2006Q4

REPORT INFORMATION
  Report Type: 
  Country: None (occurrence: None)
  Receive Date: 20061113
  Receipt Date: 20061113
  Transmission Date: 20070319
  Serious: Yes (Other)
  Sender: FDA-Public Use
  Company Number: None

PATIENT
  Sex: Female
  Weight: 74.8435 kg

DRUGS (4)
  1. CIPRO [Suspect]
     Indication: HYPERAEMIA
     Dosage: 750 MG BID PO
     Route: 048
     Dates: start: 20060308, end: 20060318
  2. CIPRO [Suspect]
     Indication: PAIN
     Dosage: 750 MG BID PO
     Route: 048
     Dates: start: 20060308, end: 20060318
  3. CIPRO [Suspect]
     Indication: POST PROCEDURAL COMPLICATION
     Dosage: 750 MG BID PO
     Route: 048
     Dates: start: 20060308, end: 20060318
  4. CIPRO [Suspect]
     Indication: TENDONITIS
     Dosage: 750 MG BID PO
     Route: 048
     Dates: start: 20060308, end: 20060318

REACTIONS (4)
  - ERYTHEMA [None]
  - INFLAMMATION [None]
  - OEDEMA PERIPHERAL [None]
  - TENDON DISORDER [None]
